FAERS Safety Report 14993229 (Version 1)
Quarter: 2018Q2

REPORT INFORMATION
  Report Type: Spontaneous
  Country: FR (occurrence: FR)
  Receive Date: 20180610
  Receipt Date: 20180610
  Transmission Date: 20180711
  Serious: Yes (Other)
  Sender: FDA-Public Use
  Company Number: FR-BEH-2018091305

PATIENT
  Age: 70 Year
  Sex: Male

DRUGS (2)
  1. HIZENTRA [Suspect]
     Active Substance: HUMAN IMMUNOGLOBULIN G
     Indication: CHRONIC LYMPHOCYTIC LEUKAEMIA
     Dosage: 1 DF, QW
     Route: 058
  2. IDELALISIB [Suspect]
     Active Substance: IDELALISIB
     Indication: CHRONIC LYMPHOCYTIC LEUKAEMIA
     Dosage: UNK
     Route: 048
     Dates: start: 201512

REACTIONS (2)
  - Toxic skin eruption [Not Recovered/Not Resolved]
  - Eczema [Recovered/Resolved]

NARRATIVE: CASE EVENT DATE: 201702
